FAERS Safety Report 6304717-3 (Version None)
Quarter: 2009Q3

REPORT INFORMATION
  Report Type: 
  Country: None (occurrence: None)
  Receive Date: 20090811
  Receipt Date: 20090804
  Transmission Date: 20100115
  Serious: Yes (Other)
  Sender: FDA-Public Use
  Company Number: A0800419A

PATIENT
  Age: 33 Year
  Sex: Female

DRUGS (4)
  1. LAMICTAL [Suspect]
     Indication: BIPOLAR DISORDER
     Dosage: 200MG PER DAY
     Route: 048
     Dates: start: 20090605, end: 20090730
  2. ABILIFY [Concomitant]
  3. KLONOPIN [Concomitant]
  4. FENTANYL [Concomitant]

REACTIONS (3)
  - DECREASED APPETITE [None]
  - RASH [None]
  - STEVENS-JOHNSON SYNDROME [None]
